APPROVED DRUG PRODUCT: ZYMAXID
Active Ingredient: GATIFLOXACIN
Strength: 0.5%
Dosage Form/Route: SOLUTION/DROPS;OPHTHALMIC
Application: N022548 | Product #001 | TE Code: AT
Applicant: ABBVIE INC
Approved: May 18, 2010 | RLD: Yes | RS: Yes | Type: RX